FAERS Safety Report 4774283-2 (Version None)
Quarter: 2005Q3

REPORT INFORMATION
  Report Type: 
  Country: None (occurrence: None)
  Receive Date: 20050914
  Receipt Date: 20050401
  Transmission Date: 20060218
  Serious: Yes (Other)
  Sender: FDA-Public Use
  Company Number: 163-20785-05040246

PATIENT
  Sex: Male

DRUGS (10)
  1. THALIDOMIDE OR PLACEBO (THALIDOMIDE) (CAPSULES) [Suspect]
     Indication: PROSTATIC INTRAEPITHELIAL NEOPLASIA
     Dosage: SEE IMAGE
     Route: 048
     Dates: start: 20021203
  2. THALIDOMIDE OR PLACEBO (THALIDOMIDE) (CAPSULES) [Suspect]
     Indication: PROSTATIC INTRAEPITHELIAL NEOPLASIA
     Dosage: SEE IMAGE
     Route: 048
     Dates: start: 20030606
  3. THALIDOMIDE OR PLACEBO (THALIDOMIDE) (CAPSULES) [Suspect]
     Indication: PROSTATIC INTRAEPITHELIAL NEOPLASIA
     Dosage: SEE IMAGE
     Route: 048
     Dates: start: 20030623
  4. THALIDOMIDE OR PLACEBO (THALIDOMIDE) (CAPSULES) [Suspect]
     Indication: PROSTATIC INTRAEPITHELIAL NEOPLASIA
     Dosage: SEE IMAGE
     Route: 048
     Dates: start: 20030728
  5. THALIDOMIDE OR PLACEBO (THALIDOMIDE) (CAPSULES) [Suspect]
     Indication: PROSTATIC INTRAEPITHELIAL NEOPLASIA
     Dosage: SEE IMAGE
     Route: 048
     Dates: start: 20031103
  6. LEUPROLIDE ACETATE [Suspect]
     Indication: PROSTATIC INTRAEPITHELIAL NEOPLASIA
     Dosage: SEE IMAGE
     Route: 058
     Dates: start: 20021203
  7. LEUPROLIDE ACETATE [Suspect]
     Indication: PROSTATIC INTRAEPITHELIAL NEOPLASIA
     Dosage: SEE IMAGE
     Route: 058
     Dates: start: 20030606
  8. LEUPROLIDE ACETATE [Suspect]
     Indication: PROSTATIC INTRAEPITHELIAL NEOPLASIA
     Dosage: SEE IMAGE
     Route: 058
     Dates: start: 20030623
  9. LEUPROLIDE ACETATE [Suspect]
     Indication: PROSTATIC INTRAEPITHELIAL NEOPLASIA
     Dosage: SEE IMAGE
     Route: 058
     Dates: start: 20030728
  10. LEUPROLIDE ACETATE [Suspect]
     Indication: PROSTATIC INTRAEPITHELIAL NEOPLASIA
     Dosage: SEE IMAGE
     Route: 058
     Dates: start: 20031103

REACTIONS (1)
  - ERECTILE DYSFUNCTION [None]
